FAERS Safety Report 23749576 (Version 1)
Quarter: 2024Q2

REPORT INFORMATION
  Report Type: Spontaneous
  Country: NL (occurrence: NL)
  Receive Date: 20240416
  Receipt Date: 20240416
  Transmission Date: 20240716
  Serious: Yes (Hospitalization, Other)
  Sender: FDA-Public Use
  Company Number: None

PATIENT
  Age: 28 Year
  Sex: Female
  Weight: 63 kg

DRUGS (1)
  1. FREMANEZUMAB [Suspect]
     Active Substance: FREMANEZUMAB
     Indication: Migraine
     Dosage: ONCE EVERY 28 DAYS, FREMANEZUMAB INJVLST / BRAND NAME NOT SPECIFIED
     Route: 065
     Dates: start: 20230812

REACTIONS (2)
  - Palpitations [Recovered/Resolved]
  - Atrial fibrillation [Recovered/Resolved]
